FAERS Safety Report 10752117 (Version 1)
Quarter: 2015Q1

REPORT INFORMATION
  Report Type: Spontaneous
  Country: CN (occurrence: None)
  Receive Date: 20150128
  Receipt Date: 20150128
  Transmission Date: 20150721
  Serious: Yes (Hospitalization, Other)
  Sender: FDA-Public Use
  Company Number: CN2015GSK008152

PATIENT
  Age: 54 Year
  Sex: Female
  Weight: 55.5 kg

DRUGS (3)
  1. HEPTODIN [Suspect]
     Active Substance: LAMIVUDINE
     Indication: HIV INFECTION
     Route: 048
     Dates: start: 20121201, end: 20140903
  2. KALETRA [Suspect]
     Active Substance: LOPINAVIR\RITONAVIR
     Indication: HIV INFECTION
     Route: 048
     Dates: start: 20121201, end: 20140903
  3. VIREAD [Suspect]
     Active Substance: TENOFOVIR DISOPROXIL FUMARATE
     Indication: HIV INFECTION
     Route: 048
     Dates: start: 20121201, end: 20140815

REACTIONS (4)
  - Renal failure [None]
  - Hypokalaemia [None]
  - Acquired immunodeficiency syndrome [None]
  - Abdominal distension [None]

NARRATIVE: CASE EVENT DATE: 20140815
